FAERS Safety Report 6946060-5 (Version None)
Quarter: 2010Q3

REPORT INFORMATION
  Report Type: 
  Country: None (occurrence: None)
  Receive Date: 20100827
  Receipt Date: 20100111
  Transmission Date: 20110219
  Serious: No
  Sender: FDA-Public Use
  Company Number: A0832291A

PATIENT
  Sex: Male

DRUGS (2)
  1. ZOVIRAX [Suspect]
     Dosage: 5G UNKNOWN
     Route: 065
  2. ZOVIRAX [Suspect]
     Route: 065

REACTIONS (3)
  - EXPIRED DRUG ADMINISTERED [None]
  - NO ADVERSE EVENT [None]
  - PRODUCT QUALITY ISSUE [None]
